FAERS Safety Report 6732728-2 (Version None)
Quarter: 2010Q2

REPORT INFORMATION
  Report Type: 
  Country: None (occurrence: None)
  Receive Date: 20100514
  Receipt Date: 20100503
  Transmission Date: 20101027
  Serious: Yes (Life-Threatening, Hospitalization)
  Sender: FDA-Public Use
  Company Number: IDA-00326

PATIENT
  Age: 56 Year
  Sex: Female

DRUGS (6)
  1. PROPRANOLOL [Suspect]
     Indication: HYPERTENSION
     Dosage: 17 TABLETS OF 10 MG, ORAL FORMULATION: TABLET
     Route: 048
     Dates: start: 20100105, end: 20100105
  2. PROPRANOLOL [Suspect]
     Indication: STRESS
     Dosage: 17 TABLETS OF 10 MG, ORAL FORMULATION: TABLET
     Route: 048
     Dates: start: 20100105, end: 20100105
  3. TEGRETOL [Concomitant]
  4. METFORMAX (METFORMIN HYDROCHLORIDE) [Concomitant]
  5. (ATORVASTATIN) [Concomitant]
  6. FUROSEMIDE [Concomitant]

REACTIONS (11)
  - AORTIC VALVE INCOMPETENCE [None]
  - ATRIOVENTRICULAR BLOCK [None]
  - ATRIOVENTRICULAR BLOCK COMPLETE [None]
  - BLOOD PRESSURE INCREASED [None]
  - CARDIOGENIC SHOCK [None]
  - COMA [None]
  - DRUG TOXICITY [None]
  - EJECTION FRACTION DECREASED [None]
  - MITRAL VALVE INCOMPETENCE [None]
  - RESPIRATORY RATE INCREASED [None]
  - SINUS BRADYCARDIA [None]
